FAERS Safety Report 6854231-1 (Version None)
Quarter: 2010Q3

REPORT INFORMATION
  Report Type: 
  Country: None (occurrence: None)
  Receive Date: 20100717
  Receipt Date: 20071228
  Transmission Date: 20110219
  Serious: No
  Sender: FDA-Public Use
  Company Number: US-PFIZER INC-2008001244

PATIENT
  Sex: Female
  Weight: 74.8 kg

DRUGS (5)
  1. CHANTIX [Suspect]
     Indication: SMOKING CESSATION THERAPY
     Dosage: 1MG BID EVERY DAY TDD:2MG
     Dates: start: 20060101, end: 20070101
  2. PREMARIN [Concomitant]
  3. BENICAR [Concomitant]
  4. HYDROCHLOROTHIAZIDE [Concomitant]
  5. SIMVASTATIN [Concomitant]

REACTIONS (1)
  - NAUSEA [None]
